FAERS Safety Report 9852570 (Version 1)
Quarter: 2014Q1

REPORT INFORMATION
  Report Type: Spontaneous
  Country: US (occurrence: US)
  Receive Date: 20140129
  Receipt Date: 20140129
  Transmission Date: 20141002
  Serious: No
  Sender: FDA-Public Use
  Company Number: US-PFIZER INC-2014027080

PATIENT
  Age: 36 Year
  Sex: Female
  Weight: 136 kg

DRUGS (3)
  1. CHANTIX [Suspect]
     Indication: SMOKING CESSATION THERAPY
     Dosage: UNK
     Route: 048
     Dates: start: 201401, end: 201401
  2. CHANTIX [Suspect]
     Dosage: 1 DF, 2X/DAY
     Route: 048
     Dates: start: 201401
  3. LEVOTHYROXINE [Concomitant]
     Indication: THYROID DISORDER
     Dosage: 125 UG, DAILY

REACTIONS (1)
  - Insomnia [Not Recovered/Not Resolved]
